FAERS Safety Report 9434536 (Version 2)
Quarter: 2013Q3

REPORT INFORMATION
  Report Type: Spontaneous
  Country: US (occurrence: US)
  Receive Date: 20130801
  Receipt Date: 20130917
  Transmission Date: 20140515
  Serious: No
  Sender: FDA-Public Use
  Company Number: US-PFIZER INC-2013219810

PATIENT
  Age: 85 Year
  Sex: Female
  Weight: 68.48 kg

DRUGS (3)
  1. ADVIL PM [Suspect]
     Indication: INSOMNIA
     Dosage: UNK, AS NEEDED
     Route: 048
     Dates: end: 20130724
  2. ADVIL PM [Suspect]
     Indication: BACK PAIN
  3. CALCIUM [Concomitant]
     Dosage: UNK

REACTIONS (1)
  - Drug ineffective [Unknown]
